FAERS Safety Report 6986442-9 (Version None)
Quarter: 2010Q3

REPORT INFORMATION
  Report Type: 
  Country: None (occurrence: None)
  Receive Date: 20100915
  Receipt Date: 20090708
  Transmission Date: 20110219
  Serious: No
  Sender: FDA-Public Use
  Company Number: US-WYE-H10091009

PATIENT
  Sex: Female
  Weight: 74.91 kg

DRUGS (6)
  1. PRISTIQ [Suspect]
     Indication: DEPRESSION
     Route: 048
     Dates: start: 20090618, end: 20090618
  2. PRISTIQ [Suspect]
     Route: 048
     Dates: start: 20090619, end: 20090620
  3. GLUCOPHAGE [Concomitant]
  4. SYNTHROID [Concomitant]
  5. ADVAIR DISKUS 100/50 [Concomitant]
  6. LIPITOR [Concomitant]

REACTIONS (2)
  - CONDITION AGGRAVATED [None]
  - HYPERTENSION [None]
